FAERS Safety Report 5662660-7 (Version None)
Quarter: 2008Q1

REPORT INFORMATION
  Report Type: 
  Country: None (occurrence: None)
  Receive Date: 20080313
  Receipt Date: 20080228
  Transmission Date: 20080703
  Serious: Yes (Other)
  Sender: FDA-Public Use
  Company Number: US-BAYER-200815865NA

PATIENT
  Age: 82 Year

DRUGS (13)
  1. LEVITRA [Suspect]
     Indication: ERECTILE DYSFUNCTION
     Dosage: TOTAL DAILY DOSE: 20 MG  UNIT DOSE: 20 MG
     Route: 048
     Dates: start: 20080227, end: 20080227
  2. CHILDREN'S ASPIRIN [Concomitant]
  3. FISH OIL [Concomitant]
  4. PLAVIX [Concomitant]
  5. METOPROLOL TARTRATE [Concomitant]
  6. CARVEDILOL [Concomitant]
  7. LISINOPRIL [Concomitant]
  8. LIPITOR [Concomitant]
  9. SIMVASTATIN [Concomitant]
  10. MEGESTROL AC [Concomitant]
  11. FLOMAX [Concomitant]
  12. IBUPROFEN [Concomitant]
  13. MEDICINE LIKE ROBITUSSIN [Concomitant]

REACTIONS (2)
  - ERECTILE DYSFUNCTION [None]
  - HYPERTENSION [None]
